FAERS Safety Report 6391191-4 (Version None)
Quarter: 2009Q4

REPORT INFORMATION
  Report Type: 
  Country: None (occurrence: None)
  Receive Date: 20091006
  Receipt Date: 20091006
  Transmission Date: 20100525
  Serious: Yes (Other)
  Sender: FDA-Public Use
  Company Number: None

PATIENT
  Age: 55 Year
  Sex: Male
  Weight: 58.9676 kg

DRUGS (1)
  1. SYMBICORT [Suspect]
     Indication: DYSPNOEA
     Dosage: 1 INHALATION 2X/DAY OTHER
     Route: 050
     Dates: start: 20090915, end: 20090916

REACTIONS (4)
  - DYSPNOEA [None]
  - EYE SWELLING [None]
  - RASH [None]
  - SWELLING FACE [None]
